FAERS Safety Report 6817560-3 (Version None)
Quarter: 2010Q3

REPORT INFORMATION
  Report Type: 
  Country: None (occurrence: None)
  Receive Date: 20100706
  Receipt Date: 20100625
  Transmission Date: 20110219
  Serious: No
  Sender: FDA-Public Use
  Company Number: US-JNJFOC-20100608417

PATIENT
  Sex: Female

DRUGS (4)
  1. FENTANYL [Suspect]
     Indication: EXOSTOSIS
     Route: 062
     Dates: start: 20100201
  2. FENTANYL [Suspect]
     Indication: FIBROMYALGIA
     Route: 062
     Dates: start: 20100201
  3. FENTANYL [Suspect]
     Indication: NEURALGIA
     Route: 062
     Dates: start: 20100201
  4. FENTANYL [Suspect]
     Indication: INTERVERTEBRAL DISC PROTRUSION
     Route: 062
     Dates: start: 20100201

REACTIONS (2)
  - THERAPEUTIC RESPONSE DECREASED [None]
  - WRONG TECHNIQUE IN DRUG USAGE PROCESS [None]
